FAERS Safety Report 9364600 (Version 1)
Quarter: 2013Q2

REPORT INFORMATION
  Report Type: Spontaneous
  Country: US (occurrence: US)
  Receive Date: 20130624
  Receipt Date: 20130624
  Transmission Date: 20140414
  Serious: Yes (Other)
  Sender: FDA-Public Use
  Company Number: US-PERRIGO-13US006414

PATIENT
  Sex: Female

DRUGS (2)
  1. CALCIUM CARBONATE FRUIT CHEWABLE 500 MG 478 [Suspect]
     Indication: PRODUCT USED FOR UNKNOWN INDICATION
     Dosage: UNK, UNK
     Route: 048
  2. STEROIDS [Concomitant]
     Indication: DYSPNOEA
     Dosage: UNK, UNK
     Route: 065
     Dates: start: 201306

REACTIONS (3)
  - Hypersensitivity [Unknown]
  - Dyspnoea [Unknown]
  - Expired drug administered [Unknown]
